FAERS Safety Report 5934507-2 (Version None)
Quarter: 2008Q4

REPORT INFORMATION
  Report Type: 
  Country: None (occurrence: None)
  Receive Date: 20081029
  Receipt Date: 20081018
  Transmission Date: 20090506
  Serious: Yes (Death)
  Sender: FDA-Public Use
  Company Number: FR-ELI_LILLY_AND_COMPANY-FR200810004519

PATIENT
  Age: 80 Year
  Sex: Female

DRUGS (7)
  1. ZYPREXA [Suspect]
     Indication: MANIA
     Dosage: 5 MG, UNK
     Route: 048
     Dates: start: 20081015
  2. DEPAMIDE [Concomitant]
     Dosage: 300 MG, DAILY (1/D)
     Route: 048
  3. MOTILIUM [Concomitant]
     Route: 048
  4. GAVISCON /00237601/ [Concomitant]
     Route: 048
  5. NEXIUM [Concomitant]
  6. SMECTA /01255901/ [Concomitant]
  7. RISPERDAL [Concomitant]

REACTIONS (1)
  - DEATH [None]
